FAERS Safety Report 17572839 (Version 1)
Quarter: 2020Q1

REPORT INFORMATION
  Report Type: Spontaneous
  Country: US (occurrence: US)
  Receive Date: 20200323
  Receipt Date: 20200323
  Transmission Date: 20200409
  Serious: Yes (Death)
  Sender: FDA-Public Use
  Company Number: None

PATIENT
  Age: 93 Year
  Sex: Female

DRUGS (13)
  1. VITAMIN B12 [Concomitant]
     Active Substance: CYANOCOBALAMIN
  2. KLOR-CON [Concomitant]
     Active Substance: POTASSIUM CHLORIDE
  3. MAGOX [Concomitant]
  4. CAPECITABINE. [Suspect]
     Active Substance: CAPECITABINE
     Indication: BREAST CANCER FEMALE
     Route: 048
     Dates: start: 20180725
  5. PROCARDIA [Concomitant]
     Active Substance: NIFEDIPINE
  6. WARFARIN [Concomitant]
     Active Substance: WARFARIN
  7. HYDRALAZINE [Concomitant]
     Active Substance: HYDRALAZINE HYDROCHLORIDE
  8. VITAMIN C [Concomitant]
     Active Substance: ASCORBIC ACID
  9. EVISTA [Concomitant]
     Active Substance: RALOXIFENE HYDROCHLORIDE
  10. EXELON [Concomitant]
     Active Substance: RIVASTIGMINE TARTRATE
  11. ISOSORBIDE. [Concomitant]
     Active Substance: ISOSORBIDE
  12. LETROZOLE. [Concomitant]
     Active Substance: LETROZOLE
  13. OMEPRAZOLE. [Concomitant]
     Active Substance: OMEPRAZOLE

REACTIONS (1)
  - Death [None]
